FAERS Safety Report 15755229 (Version 1)
Quarter: 2018Q4

REPORT INFORMATION
  Report Type: Spontaneous
  Country: US (occurrence: US)
  Receive Date: 20181221
  Receipt Date: 20181221
  Transmission Date: 20190205
  Serious: Yes (Other)
  Sender: FDA-Public Use
  Company Number: None

PATIENT
  Age: 57 Year
  Sex: Male
  Weight: 78.3 kg

DRUGS (1)
  1. PURE EYES STERILE EYES [Suspect]
     Active Substance: GLYCERIN\NAPHAZOLINE HYDROCHLORIDE
     Indication: SELF-MEDICATION
     Dosage: ?          OTHER FREQUENCY:ONCE;?
     Route: 061
     Dates: start: 20181221, end: 20181221

REACTIONS (1)
  - Reaction to preservatives [None]

NARRATIVE: CASE EVENT DATE: 20181221
